FAERS Safety Report 18511620 (Version 2)
Quarter: 2020Q4

REPORT INFORMATION
  Report Type: Report from Study
  Country: None (occurrence: FR)
  Receive Date: 20201117
  Receipt Date: 20201203
  Transmission Date: 20210114
  Serious: Yes (Death, Life-Threatening)
  Sender: FDA-Public Use
  Company Number: FR-BIOVITRUM-2020FR6409

PATIENT
  Age: 51 Year
  Sex: Male

DRUGS (9)
  1. CEFEPIME [Concomitant]
     Active Substance: CEFEPIME HYDROCHLORIDE
  2. FLUDROCORTISONE [Concomitant]
     Active Substance: FLUDROCORTISONE
  3. AMOXICILLIN/CLAVULANIC ACID [Concomitant]
     Active Substance: AMOXICILLIN\CLAVULANIC ACID
  4. VANCOMYCIN [Concomitant]
     Active Substance: VANCOMYCIN
  5. NON-FRACTIONED HEPARIN [Concomitant]
  6. KINERET [Suspect]
     Active Substance: ANAKINRA
     Indication: COVID-19
     Route: 042
     Dates: start: 20200409, end: 20200415
  7. KINERET [Suspect]
     Active Substance: ANAKINRA
     Route: 042
     Dates: start: 20200415, end: 20200416
  8. MEROPENEM. [Concomitant]
     Active Substance: MEROPENEM
  9. HYDROCORTISONE. [Concomitant]
     Active Substance: HYDROCORTISONE

REACTIONS (5)
  - Staphylococcal sepsis [Recovered/Resolved]
  - Septic shock [Recovered/Resolved]
  - Pneumonia bacterial [Fatal]
  - Klebsiella infection [Fatal]
  - Pneumonia pneumococcal [Recovered/Resolved]

NARRATIVE: CASE EVENT DATE: 20200418
